FAERS Safety Report 7147277 (Version 2)
Quarter: 2012Q4

REPORT INFORMATION
  Report Type: 
  Country: PL (occurrence: PL)
  Receive Date: 20091013
  Receipt Date: 20121012
  Transmission Date: 20130627
  Serious: Yes (Death)
  Sender: FDA-Public Use
  Company Number: PL-ROCHE-661041

PATIENT
  Sex: Female

DRUGS (1)
  1. XELODA [Suspect]
     Indication: BREAST CANCER METASTATIC
     Route: 065
     Dates: start: 200705, end: 200710

REACTIONS (5)
  - Disease progression [Fatal]
  - Palmar-plantar erythrodysaesthesia syndrome [Unknown]
  - Asthenia [Unknown]
  - Oedema peripheral [Unknown]
  - General physical health deterioration [Unknown]
